FAERS Safety Report 7200957-X (Version None)
Quarter: 2010Q4

REPORT INFORMATION
  Report Type: 
  Country: None (occurrence: None)
  Receive Date: 20101228
  Receipt Date: 20101216
  Transmission Date: 20110411
  Serious: Yes (Hospitalization, Other)
  Sender: FDA-Public Use
  Company Number: US-PFIZER INC-US-WYE-H17980110

PATIENT
  Sex: Female
  Weight: 63.5 kg

DRUGS (10)
  1. EFFEXOR XR [Suspect]
     Indication: DEPRESSION
     Dosage: UNKNOWN
     Route: 065
     Dates: start: 20070101
  2. GEODON [Suspect]
     Indication: BIPOLAR DISORDER
     Dosage: 60.0 MG, 2X/DAY
     Route: 048
     Dates: start: 20050101
  3. GEODON [Suspect]
     Dosage: 80.0 MG, 3X/DAY
     Route: 065
     Dates: start: 20070101
  4. VALIUM [Concomitant]
     Dosage: UNK
     Route: 065
  5. NEURONTIN [Concomitant]
     Dosage: UNK
     Route: 065
  6. VISTARIL [Concomitant]
     Dosage: UNK
     Route: 065
  7. ZOCOR [Concomitant]
     Dosage: UNK
     Route: 065
  8. TRAZODONE [Concomitant]
     Dosage: UNK
     Route: 065
  9. VICODIN [Concomitant]
     Dosage: UNK
     Route: 065
  10. ZOMETA [Concomitant]
     Dosage: UNKNOWN DOSE, MONTHLY
     Route: 042

REACTIONS (3)
  - BREAST CANCER METASTATIC [None]
  - DEPRESSION [None]
  - SUICIDAL IDEATION [None]
